FAERS Safety Report 10762645 (Version 1)
Quarter: 2015Q1

REPORT INFORMATION
  Report Type: Spontaneous
  Country: US (occurrence: None)
  Receive Date: 20150129
  Receipt Date: 20150129
  Transmission Date: 20150721
  Serious: Yes (Other)
  Sender: FDA-Public Use
  Company Number: 115775

PATIENT
  Age: 51 Year
  Sex: Male
  Weight: 87.7 kg

DRUGS (1)
  1. KEPPRA [Suspect]
     Active Substance: LEVETIRACETAM
     Dosage: 750 MG TWO TABLETS EVERY EIGHT HOURS

REACTIONS (3)
  - Overdose [None]
  - Generalised tonic-clonic seizure [None]
  - Partial seizures [None]

NARRATIVE: CASE EVENT DATE: 2007
